FAERS Safety Report 6356745-X (Version None)
Quarter: 2009Q3

REPORT INFORMATION
  Report Type: 
  Country: None (occurrence: None)
  Receive Date: 20090915
  Receipt Date: 20090903
  Transmission Date: 20100115
  Serious: Yes (Other)
  Sender: FDA-Public Use
  Company Number: DK-SANOFI-SYNTHELABO-A01200909309

PATIENT
  Age: 23 Year
  Sex: Male
  Weight: 60 kg

DRUGS (4)
  1. LAMOTRIGINE [Concomitant]
     Indication: DEPRESSION
     Dosage: 100 MG
     Route: 065
     Dates: start: 20080923
  2. MIRTAZAPINE [Concomitant]
     Indication: DEPRESSION
     Dosage: 30 MG
     Route: 048
     Dates: start: 20080819
  3. NIMADORM [Suspect]
     Indication: INSOMNIA
     Route: 048
     Dates: start: 20090618, end: 20090619
  4. CIPRALEX [Concomitant]
     Indication: DEPRESSION
     Dosage: 20 MG
     Route: 048
     Dates: start: 20080730

REACTIONS (1)
  - DELIRIUM [None]
